FAERS Safety Report 9664103 (Version 1)
Quarter: 2013Q4

REPORT INFORMATION
  Report Type: Spontaneous
  Country: US (occurrence: None)
  Receive Date: 20131030
  Receipt Date: 20131030
  Transmission Date: 20140711
  Serious: Yes (Other)
  Sender: FDA-Public Use
  Company Number: None

PATIENT
  Age: 3 Year
  Sex: Female
  Weight: 21.2 kg

DRUGS (1)
  1. LEVETIRACETAM [Suspect]
     Indication: EPILEPSY
     Dates: start: 201102, end: 201104

REACTIONS (2)
  - Abnormal behaviour [None]
  - Mood altered [None]
